FAERS Safety Report 6267148-0 (Version None)
Quarter: 2009Q3

REPORT INFORMATION
  Report Type: 
  Country: None (occurrence: None)
  Receive Date: 20090714
  Receipt Date: 20090707
  Transmission Date: 20100115
  Serious: Yes (Congenital Anomaly)
  Sender: FDA-Public Use
  Company Number: CA-ASTRAZENECA-2009UW19009

PATIENT
  Age: 0 Day
  Sex: Female
  Weight: 2.8 kg

DRUGS (1)
  1. SEROQUEL [Suspect]
     Route: 064

REACTIONS (1)
  - CONVULSION [None]
